FAERS Safety Report 7167470-X (Version None)
Quarter: 2010Q4

REPORT INFORMATION
  Report Type: 
  Country: None (occurrence: None)
  Receive Date: 20101216
  Receipt Date: 20100114
  Transmission Date: 20110411
  Serious: No
  Sender: FDA-Public Use
  Company Number: A0839387A

PATIENT
  Age: 62 Year
  Sex: Female

DRUGS (1)
  1. COMMIT [Suspect]
     Dates: start: 20100111

REACTIONS (2)
  - NASAL ULCER [None]
  - PRODUCT QUALITY ISSUE [None]
